FAERS Safety Report 6400958-5 (Version None)
Quarter: 2009Q4

REPORT INFORMATION
  Report Type: 
  Country: None (occurrence: None)
  Receive Date: 20091015
  Receipt Date: 20070328
  Transmission Date: 20100525
  Serious: Yes (Disabling)
  Sender: FDA-Public Use
  Company Number: US-ASTRAZENECA-2006UW11092

PATIENT
  Sex: Female
  Weight: 57.2 kg

DRUGS (9)
  1. SEROQUEL [Suspect]
     Dosage: 100MG -300MG
     Route: 048
     Dates: start: 20040922
  2. AMBIEN [Concomitant]
     Indication: INSOMNIA
     Dosage: 5MG -10MG
     Dates: start: 20030115
  3. LEXAPRO [Concomitant]
     Indication: DEPRESSION
     Dosage: 10MG -40MG
     Dates: start: 20040922
  4. KLONOPIN [Concomitant]
     Indication: ANXIETY
     Dosage: 0.5MG -2 MG
     Dates: start: 20040922
  5. VIOXX [Concomitant]
     Dates: start: 20040922
  6. SINGULAIR [Concomitant]
     Indication: ASTHMA
     Dates: start: 20040922
  7. PEPCID [Concomitant]
     Dosage: 20MG-40MG
     Route: 048
     Dates: start: 20040922
  8. TOPAMAX [Concomitant]
     Dosage: 25MG -250MG
     Dates: start: 20030214
  9. LANTUS [Concomitant]
     Indication: DIABETES MELLITUS
     Dosage: 50 UNITS- 60 UNITS
     Dates: start: 20060221

REACTIONS (1)
  - ILL-DEFINED DISORDER [None]
